FAERS Safety Report 5503841-2 (Version None)
Quarter: 2007Q4

REPORT INFORMATION
  Report Type: 
  Country: None (occurrence: None)
  Receive Date: 20071030
  Receipt Date: 20071015
  Transmission Date: 20080405
  Serious: Yes (Other)
  Sender: FDA-Public Use
  Company Number: 019967

PATIENT
  Age: 57 Year
  Sex: Female

DRUGS (2)
  1. SERTRALINE [Suspect]
     Indication: ANXIETY
     Dosage: 25 MG - 50 MG DAILY
  2. SERTRALINE [Suspect]
     Indication: DEPRESSION
     Dosage: 25 MG - 50 MG DAILY

REACTIONS (8)
  - BLADDER SPASM [None]
  - CONSTIPATION [None]
  - DYSPAREUNIA [None]
  - DYSURIA [None]
  - PELVIC FLOOR MUSCLE WEAKNESS [None]
  - TENDERNESS [None]
  - URINARY HESITATION [None]
  - URINARY RETENTION [None]
